FAERS Safety Report 8816930 (Version 1)
Quarter: 2012Q4

REPORT INFORMATION
  Report Type: Spontaneous
  Country: US (occurrence: None)
  Receive Date: 20121002
  Receipt Date: 20121002
  Transmission Date: 20130627
  Serious: Yes (Life-Threatening, Hospitalization, Disabling, Other)
  Sender: FDA-Public Use
  Company Number: None

PATIENT
  Age: 57 Year
  Sex: Male
  Weight: 99.34 kg

DRUGS (1)
  1. ZOLADEX [Suspect]
     Indication: PROSTATE CANCER STAGE IV
     Route: 023
     Dates: start: 20120313, end: 20120607

REACTIONS (5)
  - Blood glucose increased [None]
  - Hyperlipidaemia [None]
  - Splenic granuloma [None]
  - Anaemia [None]
  - Fatigue [None]
